FAERS Safety Report 5415671-0 (Version None)
Quarter: 2007Q3

REPORT INFORMATION
  Report Type: 
  Country: None (occurrence: None)
  Receive Date: 20070815
  Receipt Date: 20070312
  Transmission Date: 20080115
  Serious: No
  Sender: FDA-Public Use
  Company Number: US-BRISTOL-MYERS SQUIBB COMPANY-13711460

PATIENT
  Sex: Male

DRUGS (2)
  1. TEQUIN [Suspect]
     Indication: ANTI-INFECTIVE THERAPY
     Dates: start: 20060123
  2. TEQUIN [Suspect]
     Dates: start: 20060223

REACTIONS (1)
  - DIABETES MELLITUS [None]
